FAERS Safety Report 4804196-9 (Version None)
Quarter: 2005Q4

REPORT INFORMATION
  Report Type: 
  Country: None (occurrence: None)
  Receive Date: 20051017
  Receipt Date: 20051003
  Transmission Date: 20060501
  Serious: Yes (Death)
  Sender: FDA-Public Use
  Company Number: B0395844A

PATIENT
  Age: 24 Year

DRUGS (4)
  1. PAXIL [Suspect]
     Dosage: ORAL
     Route: 048
  2. ETHANOL (ALCOHOL) [Suspect]
  3. OPIATE (OPIATE) [Suspect]
  4. UNKOWN (FORMULATION UNKNOWN) (UNKNOWN) [Suspect]

REACTIONS (1)
  - COMPLETED SUICIDE [None]
